FAERS Safety Report 19889771 (Version 9)
Quarter: 2024Q4

REPORT INFORMATION
  Report Type: Report from Study
  Country: ZA (occurrence: ZA)
  Receive Date: 20210927
  Receipt Date: 20241211
  Transmission Date: 20250114
  Serious: Yes (Hospitalization, Other)
  Sender: ROCHE
  Company Number: ZA-ROCHE-2620313

PATIENT
  Age: 58 Year
  Sex: Female

DRUGS (5)
  1. MABTHERA [Suspect]
     Active Substance: RITUXIMAB
     Indication: Rheumatoid arthritis
     Dosage: INFUSED ON DAY 1 AND DAY 15
     Route: 042
     Dates: start: 20200115
  2. RITUXIMAB [Suspect]
     Active Substance: RITUXIMAB
     Indication: Rheumatoid arthritis
     Route: 041
     Dates: start: 20220429
  3. RITUXIMAB [Suspect]
     Active Substance: RITUXIMAB
     Route: 042
     Dates: start: 20220429
  4. RITUXIMAB [Suspect]
     Active Substance: RITUXIMAB
     Dosage: THEN EVERY 6 MONTHS
     Route: 042
  5. CORTISONE [Concomitant]
     Active Substance: CORTISONE

REACTIONS (9)
  - COVID-19 [Recovered/Resolved]
  - C-reactive protein increased [Unknown]
  - Rheumatoid arthritis [Recovered/Resolved]
  - Rheumatoid arthritis [Unknown]
  - C-reactive protein increased [Unknown]
  - Platelet count increased [Unknown]
  - Platelet count increased [Unknown]
  - Alanine aminotransferase increased [Unknown]
  - Aspartate aminotransferase increased [Unknown]

NARRATIVE: CASE EVENT DATE: 20240603
